FAERS Safety Report 8492587 (Version 3)
Quarter: 2012Q4

REPORT INFORMATION
  Report Type: Spontaneous
  Country: JP (occurrence: None)
  Receive Date: 20120327
  Receipt Date: 20120905
  Transmission Date: 20130627
  Serious: Yes (Life-Threatening, Hospitalization)
  Sender: FDA-Public Use
  Company Number: TCI2012A01338

PATIENT
  Age: 84 Year
  Sex: Male

DRUGS (3)
  1. ACTOS (PIOGLITAZONE HYDROCHLORIDE) [Suspect]
     Indication: DIABETES MELLITUS
     Route: 048
     Dates: start: 20120214, end: 20120221
  2. MITIGLINIDE CALCIUM HYDRATE [Suspect]
     Indication: DIABETES MELLITUS
     Dosage: (10 mg,3 in 1 d)
     Route: 048
     Dates: start: 20120214, end: 20120220
  3. PREDONINE (PREDNISOLONE) [Concomitant]

REACTIONS (1)
  - Toxic epidermal necrolysis [None]
